FAERS Safety Report 8637889 (Version 2)
Quarter: 2013Q2

REPORT INFORMATION
  Report Type: Spontaneous
  Country: FR (occurrence: FR)
  Receive Date: 20120627
  Receipt Date: 20130416
  Transmission Date: 20140414
  Serious: Yes (Hospitalization, Disabling, Other)
  Sender: FDA-Public Use
  Company Number: FR-SHIRE-SPV1-2012-00585

PATIENT
  Age: 40 Year
  Sex: Female
  Weight: 68 kg

DRUGS (1)
  1. XAGRID [Suspect]
     Indication: ESSENTIAL THROMBOCYTHAEMIA
     Dosage: 0.5 MG, 1X/DAY:QD
     Route: 048
     Dates: start: 20120521, end: 20120621

REACTIONS (7)
  - Hysterectomy [Unknown]
  - Rhabdomyolysis [Unknown]
  - Cauda equina syndrome [Unknown]
  - Paralysis flaccid [Unknown]
  - Generalised oedema [Recovering/Resolving]
  - Cardiac failure [Recovering/Resolving]
  - Renal failure [Unknown]
